FAERS Safety Report 6813565-7 (Version None)
Quarter: 2010Q3

REPORT INFORMATION
  Report Type: 
  Country: None (occurrence: None)
  Receive Date: 20100701
  Receipt Date: 20100630
  Transmission Date: 20110219
  Serious: No
  Sender: FDA-Public Use
  Company Number: US-B.I. PHARMACEUTICALS,INC./RIDGEFIELD-2004-BP-12381BP

PATIENT
  Age: 58 Year
  Sex: Male

DRUGS (13)
  1. FLOMAX [Suspect]
     Indication: BENIGN PROSTATIC HYPERPLASIA
     Dosage: 0.4 MG
     Route: 048
     Dates: start: 20040401, end: 20040601
  2. FLOMAX [Suspect]
     Indication: DYSURIA
  3. ATENOLOL [Concomitant]
     Dosage: 50 MG
     Route: 048
  4. TENEX [Concomitant]
     Dosage: 3 MG
     Route: 048
  5. LASIX [Concomitant]
     Dosage: 80 MG
     Route: 048
  6. COUMADIN [Concomitant]
     Dosage: 5 MG
     Route: 048
  7. ALLOPURINOL [Concomitant]
     Dosage: 300 MG
     Route: 048
  8. NEURONTIN [Concomitant]
     Dosage: 1200 MG
     Route: 048
  9. VITAMINS [Concomitant]
     Route: 048
  10. SAW PALMETTO [Concomitant]
  11. COZAAR [Concomitant]
  12. NORVASC [Concomitant]
  13. ASPIRIN [Concomitant]

REACTIONS (2)
  - GROIN PAIN [None]
  - PRIAPISM [None]
